FAERS Safety Report 4663705-3 (Version None)
Quarter: 2005Q2

REPORT INFORMATION
  Report Type: 
  Country: None (occurrence: None)
  Receive Date: 20050516
  Receipt Date: 20050505
  Transmission Date: 20051028
  Serious: Yes (Death, Other)
  Sender: FDA-Public Use
  Company Number: 2005-04-0969

PATIENT
  Age: 58 Year
  Sex: Male

DRUGS (3)
  1. K-DUR 10 [Suspect]
     Dosage: 10 MEQ ORAL
     Route: 048
  2. PROVENTIL [Suspect]
     Dosage: ORAL AER INH
     Route: 048
  3. ALBUTEROL SULFATE [Suspect]
     Dosage: INHALATION
     Route: 055

REACTIONS (3)
  - CHRONIC OBSTRUCTIVE PULMONARY DISEASE [None]
  - EMPHYSEMA [None]
  - TRIPLE VESSEL BYPASS GRAFT [None]
